FAERS Safety Report 11189013 (Version 1)
Quarter: 2015Q2

REPORT INFORMATION
  Report Type: Spontaneous
  Country: US (occurrence: US)
  Receive Date: 20150615
  Receipt Date: 20150615
  Transmission Date: 20150821
  Serious: No
  Sender: FDA-Public Use
  Company Number: US-BAYER-2015-325463

PATIENT
  Age: 47 Year
  Sex: Female

DRUGS (1)
  1. MAGNEVIST [Suspect]
     Active Substance: GADOPENTETATE DIMEGLUMINE
     Indication: COMPUTERISED TOMOGRAM PELVIS
     Dosage: 14 ML, QOD
     Route: 042
     Dates: start: 20150609, end: 20150609

REACTIONS (6)
  - Panic attack [None]
  - Swollen tongue [None]
  - Eye swelling [None]
  - Feeling abnormal [None]
  - Tinnitus [None]
  - Palpitations [None]

NARRATIVE: CASE EVENT DATE: 20150609
